FAERS Safety Report 9629850 (Version 1)
Quarter: 2013Q4

REPORT INFORMATION
  Report Type: Spontaneous
  Country: FR (occurrence: FR)
  Receive Date: 20131017
  Receipt Date: 20131017
  Transmission Date: 20140711
  Serious: Yes (Hospitalization)
  Sender: FDA-Public Use
  Company Number: FR-TEVA-437731ISR

PATIENT
  Age: 64 Year
  Sex: Female

DRUGS (4)
  1. COPAXONE [Suspect]
     Indication: MULTIPLE SCLEROSIS
     Dates: start: 20130520
  2. LAROXYL [Concomitant]
     Indication: NEURALGIA
  3. LAMICTAL [Concomitant]
     Indication: NEURALGIA
     Dosage: STOPPED FOLLOWING OCCURRENCE OF NEUTROPENIA
  4. CYMBALTA [Concomitant]
     Indication: NEURALGIA

REACTIONS (1)
  - Trigeminal neuralgia [Recovered/Resolved]
